FAERS Safety Report 24769087 (Version 3)
Quarter: 2025Q1

REPORT INFORMATION
  Report Type: Spontaneous
  Country: JP (occurrence: JP)
  Receive Date: 20241224
  Receipt Date: 20250309
  Transmission Date: 20250409
  Serious: Yes (Death, Hospitalization, Other)
  Sender: AMGEN
  Company Number: JP-DSJP-DS-2024-115347-

PATIENT
  Sex: Female

DRUGS (3)
  1. BEVACIZUMAB [Suspect]
     Active Substance: BEVACIZUMAB
     Indication: HER2 low breast cancer
     Route: 065
  2. ENHERTU [Suspect]
     Active Substance: FAM-TRASTUZUMAB DERUXTECAN-NXKI
     Indication: HER2 low breast cancer
     Dosage: 5.4 MG/KG, ONCE EVERY 3 WK
     Route: 041
  3. PACLITAXEL [Suspect]
     Active Substance: PACLITAXEL
     Indication: HER2 low breast cancer
     Route: 065

REACTIONS (4)
  - Neuropathy peripheral [Unknown]
  - Disease progression [Fatal]
  - Cholangitis [Unknown]
  - Urinary tract infection [Recovering/Resolving]
